FAERS Safety Report 4697315-9 (Version None)
Quarter: 2005Q2

REPORT INFORMATION
  Report Type: 
  Country: None (occurrence: None)
  Receive Date: 20050622
  Receipt Date: 20050429
  Transmission Date: 20051028
  Serious: Yes (Hospitalization)
  Sender: FDA-Public Use
  Company Number: 200511630FR

PATIENT
  Age: 45 Year
  Sex: Female
  Weight: 57 kg

DRUGS (2)
  1. TAXOTERE [Suspect]
     Indication: BREAST CANCER
     Route: 042
     Dates: start: 20050204, end: 20050204
  2. HERCEPTINE [Suspect]
     Indication: BREAST CANCER
     Route: 042
     Dates: start: 20050204, end: 20050204

REACTIONS (1)
  - ARTHRITIS [None]
